FAERS Safety Report 11617697 (Version 2)
Quarter: 2015Q4

REPORT INFORMATION
  Report Type: Spontaneous
  Country: FR (occurrence: FR)
  Receive Date: 20151009
  Receipt Date: 20151013
  Transmission Date: 20160304
  Serious: Yes (Hospitalization)
  Sender: FDA-Public Use
  Company Number: FR-ELI_LILLY_AND_COMPANY-FR201509009277

PATIENT
  Age: 40 Year
  Sex: Female

DRUGS (8)
  1. EUPANTOL [Concomitant]
     Active Substance: PANTOPRAZOLE SODIUM
     Dosage: UNK, UNKNOWN
     Route: 065
  2. LAROXYL [Concomitant]
     Active Substance: AMITRIPTYLINE
     Dosage: UNK, UNKNOWN
     Route: 065
  3. FENTANYL. [Concomitant]
     Active Substance: FENTANYL
     Dosage: UNK, UNKNOWN
     Route: 065
  4. GRANOCYTE [Suspect]
     Active Substance: LENOGRASTIM
     Indication: PRODUCT USED FOR UNKNOWN INDICATION
     Dosage: UNK, UNKNOWN
     Route: 065
     Dates: start: 20150803, end: 20150805
  5. GEMZAR [Suspect]
     Active Substance: GEMCITABINE HYDROCHLORIDE
     Indication: BREAST CANCER METASTATIC
     Dosage: UNK, CYCLICAL
     Route: 065
  6. GABAPENTINE [Concomitant]
     Active Substance: GABAPENTIN
     Dosage: UNK, UNKNOWN
     Route: 065
  7. CARBOPLATINE [Suspect]
     Active Substance: CARBOPLATIN
     Indication: BREAST CANCER METASTATIC
     Dosage: UNK, CYCLICAL
     Route: 065
  8. SKENAN [Concomitant]
     Active Substance: MORPHINE SULFATE
     Dosage: UNK, UNKNOWN
     Route: 065

REACTIONS (8)
  - Systemic inflammatory response syndrome [Unknown]
  - Histiocytosis haematophagic [Unknown]
  - Bicytopenia [Unknown]
  - Off label use [Unknown]
  - Deep vein thrombosis [Unknown]
  - Pyrexia [Unknown]
  - Rash erythematous [Unknown]
  - Hepatocellular injury [Unknown]

NARRATIVE: CASE EVENT DATE: 201508
